FAERS Safety Report 10234237 (Version 1)
Quarter: 2014Q2

REPORT INFORMATION
  Report Type: Spontaneous
  Country: GB (occurrence: GB)
  Receive Date: 20140612
  Receipt Date: 20140612
  Transmission Date: 20141212
  Serious: Yes (Other)
  Sender: FDA-Public Use
  Company Number: GB-MYLANLABS-2014S1012875

PATIENT
  Age: 52 Year
  Sex: Female
  Weight: 57 kg

DRUGS (5)
  1. DOXYCYCLINE [Suspect]
     Indication: MALARIA PROPHYLAXIS
     Route: 048
     Dates: end: 20140501
  2. DOXYCYCLINE [Suspect]
     Indication: MALARIA PROPHYLAXIS
     Route: 048
     Dates: start: 20140518
  3. ACICLOVIR [Concomitant]
     Indication: ORAL HERPES
     Dates: start: 20140422, end: 20140501
  4. DICLOFENAC [Concomitant]
  5. PIRITON [Concomitant]

REACTIONS (3)
  - Urticaria [Not Recovered/Not Resolved]
  - Pruritus [Unknown]
  - Rash [Recovering/Resolving]
